FAERS Safety Report 5100567-4 (Version None)
Quarter: 2006Q3

REPORT INFORMATION
  Report Type: 
  Country: None (occurrence: None)
  Receive Date: 20060909
  Receipt Date: 20060829
  Transmission Date: 20061208
  Serious: Yes (Other)
  Sender: FDA-Public Use
  Company Number: FR-ABBOTT-06P-056-0342759-00

PATIENT
  Age: 26 Year
  Sex: Female

DRUGS (1)
  1. DEPAKOTE [Suspect]
     Indication: SCHIZOAFFECTIVE DISORDER

REACTIONS (1)
  - ABORTION INDUCED [None]
